FAERS Safety Report 13924194 (Version 1)
Quarter: 2017Q3

REPORT INFORMATION
  Report Type: Spontaneous
  Country: US (occurrence: None)
  Receive Date: 20170830
  Receipt Date: 20170830
  Transmission Date: 20171127
  Serious: Yes (Disabling)
  Sender: FDA-Public Use
  Company Number: None

PATIENT
  Age: 34 Year
  Sex: Male

DRUGS (1)
  1. OLD SPICE CLASSIC ORIGINAL SCENT [Suspect]
     Active Substance: ALUMINUM ZIRCONIUM TRICHLOROHYDREX GLY
     Dosage: 1 APPLICATION, 1/DAY, TOPICAL
     Route: 061
     Dates: end: 201512

REACTIONS (10)
  - Axillary pain [None]
  - Peripheral swelling [None]
  - Skin exfoliation [None]
  - Skin injury [None]
  - Secretion discharge [None]
  - Skin mass [None]
  - Fluid retention [None]
  - Infection [None]
  - Erythema [None]
  - Chemical burn of skin [None]

NARRATIVE: CASE EVENT DATE: 201508
